FAERS Safety Report 12419724 (Version 1)
Quarter: 2016Q2

REPORT INFORMATION
  Report Type: Spontaneous
  Country: US (occurrence: US)
  Receive Date: 20160531
  Receipt Date: 20160531
  Transmission Date: 20160815
  Serious: Yes (Hospitalization, Other)
  Sender: FDA-Public Use
  Company Number: US-GLAXOSMITHKLINE-US2016GSK075783

PATIENT
  Age: 43 Year
  Sex: Male

DRUGS (3)
  1. FLOVENT [Suspect]
     Active Substance: FLUTICASONE PROPIONATE
     Indication: ASTHMA
     Dosage: UNK, U
     Dates: start: 1996
  2. VENTOLIN HFA [Suspect]
     Active Substance: ALBUTEROL SULFATE
     Indication: ASTHMA
     Dosage: UNK, U
     Dates: start: 1996
  3. ATORVASTATIN [Concomitant]
     Active Substance: ATORVASTATIN

REACTIONS (7)
  - Cardiovascular disorder [Unknown]
  - Loss of consciousness [Recovered/Resolved]
  - Mouth injury [Unknown]
  - Tooth loss [Unknown]
  - Fall [Recovered/Resolved]
  - Impaired work ability [Not Recovered/Not Resolved]
  - Emergency care [Recovered/Resolved]

NARRATIVE: CASE EVENT DATE: 200402
